FAERS Safety Report 17740666 (Version 1)
Quarter: 2020Q2

REPORT INFORMATION
  Report Type: Spontaneous
  Country: LV (occurrence: LV)
  Receive Date: 20200504
  Receipt Date: 20200504
  Transmission Date: 20200714
  Serious: Yes (Other)
  Sender: FDA-Public Use
  Company Number: LV-TEVA-2020-LV-1230152

PATIENT
  Age: 48 Year
  Sex: Male
  Weight: 105 kg

DRUGS (3)
  1. TELASSMO 80 MG/5 MG TABLETE [Concomitant]
     Indication: ESSENTIAL HYPERTENSION
     Dosage: FOR ACTIVE INGREDIENT TELMISARTAN THE STRENGTH IS 80 MILLIGRAM .?FOR ACTIVE INGREDIENT AMLODIPINE TH
     Route: 048
     Dates: start: 2011
  2. ROSUVASTATIN TEVA 10 MG APVALKOTAS TABLETES [Suspect]
     Active Substance: ROSUVASTATIN
     Indication: HYPERLIPIDAEMIA
     Dosage: 10 MG
     Route: 048
     Dates: start: 20200201
  3. BETAXOLOL 20 MG [Concomitant]
     Indication: ESSENTIAL HYPERTENSION
     Dosage: 20 MG
     Route: 048
     Dates: start: 2011

REACTIONS (2)
  - Dyspnoea [Recovered/Resolved]
  - Paraesthesia [Recovered/Resolved]

NARRATIVE: CASE EVENT DATE: 20200201
